FAERS Safety Report 8079520-7 (Version None)
Quarter: 2012Q1

REPORT INFORMATION
  Report Type: 
  Country: None (occurrence: None)
  Receive Date: 20120128
  Receipt Date: 20110825
  Transmission Date: 20120608
  Serious: No
  Sender: FDA-Public Use
  Company Number: US-ABBOTT-11P-163-0849669-00

PATIENT
  Age: 33 Year
  Sex: Male

DRUGS (1)
  1. HUMIRA [Suspect]
     Indication: PSORIASIS
     Dosage: LOADING DOSE
     Dates: start: 20110811

REACTIONS (3)
  - EXPOSURE TO TOXIC AGENT [None]
  - RASH PRURITIC [None]
  - DRUG DOSE OMISSION [None]
